FAERS Safety Report 8844686 (Version 2)
Quarter: 2013Q1

REPORT INFORMATION
  Report Type: Spontaneous
  Country: US (occurrence: None)
  Receive Date: 20121012
  Receipt Date: 20121109
  Transmission Date: 20140127
  Serious: Yes (Other)
  Sender: FDA-Public Use
  Company Number: 2012P1060515

PATIENT
  Age: 60 Year
  Sex: Female
  Weight: 63.5 kg

DRUGS (10)
  1. BELLADONNA ALKALOIDS W/PHENOBARBITAL [Suspect]
     Indication: IRRITABLE BOWEL SYNDROME
     Route: 048
     Dates: end: 20120913
  2. OXYCODONE [Suspect]
     Indication: PAIN
     Dates: start: 20120915
  3. VICODIN [Suspect]
  4. ASPIRIN 81MG [Concomitant]
  5. SOMA 350MG [Concomitant]
  6. ATIVAN 0.5MG [Concomitant]
  7. VITAMIN D3 [Concomitant]
  8. LAVAZA [Concomitant]
  9. ZETIA 10MG [Concomitant]
  10. MACRODANTIN 50MG [Concomitant]

REACTIONS (20)
  - Rheumatoid arthritis [None]
  - Cerebrovascular accident [None]
  - Hypertension [None]
  - Amnesia [None]
  - Fibromyalgia [None]
  - Osteoarthritis [None]
  - Osteoporosis [None]
  - Dry eye [None]
  - Intraocular pressure increased [None]
  - Headache [None]
  - Pain [None]
  - Fall [None]
  - Chest pain [None]
  - Product taste abnormal [None]
  - Diarrhoea [None]
  - Rib fracture [None]
  - Bone contusion [None]
  - Product quality issue [None]
  - Inadequate analgesia [None]
  - Product taste abnormal [None]
